FAERS Safety Report 18917909 (Version 3)
Quarter: 2021Q2

REPORT INFORMATION
  Report Type: Report from Study
  Country: US (occurrence: US)
  Receive Date: 20210219
  Receipt Date: 20210408
  Transmission Date: 20210717
  Serious: Yes (Hospitalization, Other)
  Sender: FDA-Public Use
  Company Number: US-BIOVITRUM-2021US1779

PATIENT
  Age: 6 Year
  Sex: Male

DRUGS (2)
  1. KINERET [Suspect]
     Active Substance: ANAKINRA
     Indication: DISEASE SUSCEPTIBILITY
     Route: 058
     Dates: start: 20190423
  2. KINERET [Suspect]
     Active Substance: ANAKINRA
     Indication: SPINAL STENOSIS

REACTIONS (4)
  - Off label use [Not Recovered/Not Resolved]
  - Abscess [Unknown]
  - Pneumonia [Unknown]
  - Hernia [Unknown]

NARRATIVE: CASE EVENT DATE: 20190423
